FAERS Safety Report 19675440 (Version 7)
Quarter: 2022Q1

REPORT INFORMATION
  Report Type: Report from Study
  Country: TR (occurrence: TR)
  Receive Date: 20210809
  Receipt Date: 20220201
  Transmission Date: 20220423
  Serious: Yes (Hospitalization, Other)
  Sender: FDA-Public Use
  Company Number: TR-ABBVIE-21K-161-4025783-00

PATIENT
  Age: 47 Year
  Sex: Male
  Weight: 72 kg

DRUGS (4)
  1. CARBIDOPA\LEVODOPA [Suspect]
     Active Substance: CARBIDOPA\LEVODOPA
     Indication: Parkinson^s disease
     Dosage: MORNING DOSE (ML): 5.30 CONTINUOUS DOSE (ML): 2.80 EXTRA DOSE (ML): 1.00
     Route: 050
     Dates: start: 20180522, end: 20210804
  2. CARBIDOPA\LEVODOPA [Suspect]
     Active Substance: CARBIDOPA\LEVODOPA
     Dosage: MD (ML): 5.30 CD (ML): 2.80 ED (ML): 1.00
     Route: 050
     Dates: start: 20210930, end: 20220124
  3. PK-MERZ [Concomitant]
     Active Substance: AMANTADINE
     Indication: Parkinson^s disease
     Route: 048
  4. DOPADEX SR [Concomitant]
     Indication: Parkinson^s disease
     Route: 048

REACTIONS (5)
  - Meningitis [Not Recovered/Not Resolved]
  - Feeding disorder [Not Recovered/Not Resolved]
  - Embedded device [Recovered/Resolved]
  - Stoma site infection [Recovered/Resolved]
  - Stoma site discharge [Recovered/Resolved]

NARRATIVE: CASE EVENT DATE: 20210804
